FAERS Safety Report 19284856 (Version 4)
Quarter: 2021Q4

REPORT INFORMATION
  Report Type: Report from Study
  Country: US (occurrence: US)
  Receive Date: 20210521
  Receipt Date: 20211220
  Transmission Date: 20220303
  Serious: Yes (Other)
  Sender: FDA-Public Use
  Company Number: US-ABBVIE-21K-163-3910310-00

PATIENT
  Sex: Male

DRUGS (3)
  1. VENCLEXTA [Suspect]
     Active Substance: VENETOCLAX
     Indication: Cardiac amyloidosis
     Dosage: TAKE 2 TABLETS BY MOUTH DAILY
     Route: 048
     Dates: start: 20200315
  2. VENCLEXTA [Suspect]
     Active Substance: VENETOCLAX
     Indication: Primary amyloidosis
     Route: 048
  3. VENCLEXTA [Suspect]
     Active Substance: VENETOCLAX
     Dosage: TAKE 2 TABLETS BY MOUTH DAILY
     Route: 048

REACTIONS (5)
  - Leukaemia [Unknown]
  - Bone marrow transplant [Unknown]
  - Off label use [Unknown]
  - Cardiac disorder [Unknown]
  - Blood glucose increased [Unknown]
